FAERS Safety Report 8171706-6 (Version None)
Quarter: 2012Q1

REPORT INFORMATION
  Report Type: 
  Country: None (occurrence: None)
  Receive Date: 20120228
  Receipt Date: 20120217
  Transmission Date: 20120608
  Serious: Yes (Hospitalization)
  Sender: FDA-Public Use
  Company Number: US-BAYER-2011-017607

PATIENT
  Age: 20 Year
  Sex: Female
  Weight: 72.109 kg

DRUGS (12)
  1. HYDROXYUREA [Concomitant]
  2. YAZ [Suspect]
     Indication: ORAL CONTRACEPTION
  3. DEXAMETHASONE [Concomitant]
     Indication: INFECTIOUS MONONUCLEOSIS
  4. ASPIRIN [Concomitant]
  5. PLAVIX [Concomitant]
     Indication: THROMBOSIS PROPHYLAXIS
  6. IBUPROFEN [Concomitant]
  7. BACTRIM [Concomitant]
  8. DIGOXIN [Concomitant]
     Indication: CARDIAC DISORDER
  9. RIFAMPIN [Concomitant]
  10. SINGULAIR [Concomitant]
  11. METOPROLOL [Concomitant]
  12. YAZ [Suspect]
     Indication: ACNE
     Dosage: UNK
     Route: 048
     Dates: start: 20080801, end: 20091001

REACTIONS (3)
  - TACHYCARDIA [None]
  - PULMONARY EMBOLISM [None]
  - SPLENIC INFARCTION [None]
